FAERS Safety Report 6170410-3 (Version None)
Quarter: 2009Q2

REPORT INFORMATION
  Report Type: 
  Country: None (occurrence: None)
  Receive Date: 20090427
  Receipt Date: 20090427
  Transmission Date: 20091009
  Serious: No
  Sender: FDA-Public Use
  Company Number: None

PATIENT
  Sex: Female
  Weight: 164 kg

DRUGS (10)
  1. NAPROSYN [Suspect]
     Dosage: 500MG TABLET 500 MG BID ORAL
     Route: 048
     Dates: start: 20090116, end: 20090424
  2. BENADRYL [Concomitant]
  3. CELEXA [Concomitant]
  4. CLARITIN-D [Concomitant]
  5. EPIPEN [Concomitant]
  6. LORAZEPAM [Concomitant]
  7. MAALOX [Concomitant]
  8. METHYLPREDNISOLONE 4MG TAB [Concomitant]
  9. PERCOCET [Concomitant]
  10. PRILOSEC [Concomitant]

REACTIONS (1)
  - RASH [None]
